FAERS Safety Report 13056006 (Version 1)
Quarter: 2016Q4

REPORT INFORMATION
  Report Type: Spontaneous
  Country: US (occurrence: US)
  Receive Date: 20161222
  Receipt Date: 20161222
  Transmission Date: 20170207
  Serious: No
  Sender: FDA-Public Use
  Company Number: US-GLAXOSMITHKLINE-US2016190019

PATIENT
  Sex: Female

DRUGS (13)
  1. HYDROCHLOROTHIAZIDE. [Concomitant]
     Active Substance: HYDROCHLOROTHIAZIDE
  2. CLONIDINE. [Concomitant]
     Active Substance: CLONIDINE
  3. LEVOTHYROXINE. [Concomitant]
     Active Substance: LEVOTHYROXINE
  4. MONTELUKAST [Concomitant]
     Active Substance: MONTELUKAST SODIUM
  5. VITAMIN D3 [Concomitant]
     Active Substance: CHOLECALCIFEROL
  6. BREO ELLIPTA [Suspect]
     Active Substance: FLUTICASONE FUROATE\VILANTEROL TRIFENATATE
     Indication: VOCAL CORD DISORDER
     Dosage: 1 PUFF(S), QD
     Route: 055
     Dates: start: 20161130
  7. AMLODIPINE [Concomitant]
     Active Substance: AMLODIPINE BESYLATE
  8. VITAMIN B12 [Concomitant]
     Active Substance: CYANOCOBALAMIN
  9. CALCIUM CARBONATE. [Concomitant]
     Active Substance: CALCIUM CARBONATE
  10. LISINOPRIL. [Concomitant]
     Active Substance: LISINOPRIL
  11. METOPROLOL. [Concomitant]
     Active Substance: METOPROLOL
  12. MINOXIDIL. [Concomitant]
     Active Substance: MINOXIDIL
  13. PANTOPRAZOLE [Concomitant]
     Active Substance: PANTOPRAZOLE SODIUM

REACTIONS (10)
  - Oral candidiasis [Recovering/Resolving]
  - Dizziness [Recovered/Resolved]
  - Drug dose omission [Unknown]
  - Pyrexia [Unknown]
  - Oral pain [Unknown]
  - Abdominal discomfort [Recovered/Resolved]
  - Lip swelling [Unknown]
  - Product use issue [Unknown]
  - Labyrinthitis [Unknown]
  - Urinary tract infection [Recovering/Resolving]
